FAERS Safety Report 4361191-4 (Version None)
Quarter: 2004Q2

REPORT INFORMATION
  Report Type: 
  Country: None (occurrence: None)
  Receive Date: 20040510
  Receipt Date: 20030722
  Transmission Date: 20050107
  Serious: Yes (Hospitalization)
  Sender: FDA-Public Use
  Company Number: TAP2003Q01728

PATIENT
  Age: 30 Year
  Sex: Female
  Weight: 69.4003 kg

DRUGS (3)
  1. LUPRON DEPOT-3 [Suspect]
     Indication: ENDOMETRIOSIS
     Dosage: 11.25 MG, 1 IN 3 M, INTRAMUSCULAR; 11.25 MG, ONCE, INTRAMUSCULAR
     Route: 030
     Dates: start: 19990601, end: 19990901
  2. LUPRON DEPOT-3 [Suspect]
     Indication: ENDOMETRIOSIS
     Dosage: 11.25 MG, 1 IN 3 M, INTRAMUSCULAR; 11.25 MG, ONCE, INTRAMUSCULAR
     Route: 030
     Dates: start: 20030703, end: 20030703
  3. AYGESTIN [Concomitant]

REACTIONS (3)
  - INJECTED LIMB MOBILITY DECREASED [None]
  - INJECTION SITE ABSCESS [None]
  - INJECTION SITE CELLULITIS [None]
